FAERS Safety Report 12107404 (Version 1)
Quarter: 2016Q1

REPORT INFORMATION
  Report Type: Spontaneous
  Country: US (occurrence: US)
  Receive Date: 20160224
  Receipt Date: 20160224
  Transmission Date: 20160526
  Serious: No
  Sender: FDA-Public Use
  Company Number: US-BIOGEN-2015BI006580

PATIENT
  Sex: Female

DRUGS (1)
  1. AVONEX [Suspect]
     Active Substance: INTERFERON BETA-1A
     Indication: MULTIPLE SCLEROSIS
     Route: 030
     Dates: start: 20090106

REACTIONS (4)
  - Dental caries [Not Recovered/Not Resolved]
  - Nerve injury [Unknown]
  - Tooth disorder [Unknown]
  - Neuralgia [Unknown]

NARRATIVE: CASE EVENT DATE: 2010
